FAERS Safety Report 16135497 (Version 4)
Quarter: 2020Q3

REPORT INFORMATION
  Report Type: Spontaneous
  Country: DE (occurrence: DE)
  Receive Date: 20190329
  Receipt Date: 20200714
  Transmission Date: 20201102
  Serious: Yes (Hospitalization)
  Sender: FDA-Public Use
  Company Number: DE-JNJFOC-20190333074

PATIENT
  Age: 67 Year
  Sex: Male

DRUGS (6)
  1. LISINOPRIL. [Suspect]
     Active Substance: LISINOPRIL
     Indication: HYPERTENSION
     Route: 065
     Dates: start: 2001
  2. HYPNOREX [Suspect]
     Active Substance: LITHIUM CARBONATE
     Indication: BIPOLAR DISORDER
     Route: 065
     Dates: start: 1998
  3. LITHIUM CARBONATE. [Suspect]
     Active Substance: LITHIUM CARBONATE
     Indication: BIPOLAR DISORDER
     Route: 065
     Dates: start: 2005
  4. IBUPROFEN. [Suspect]
     Active Substance: IBUPROFEN
     Indication: NASOPHARYNGITIS
     Route: 065
  5. HYPNOREX [Suspect]
     Active Substance: LITHIUM CARBONATE
     Route: 065
     Dates: start: 2000
  6. HYPNOREX [Suspect]
     Active Substance: LITHIUM CARBONATE
     Route: 065
     Dates: start: 2001

REACTIONS (12)
  - Hypomania [Unknown]
  - Ataxia [Recovering/Resolving]
  - Agitation [Recovering/Resolving]
  - Blood creatinine increased [Unknown]
  - Dysphagia [Recovering/Resolving]
  - Toxicity to various agents [Recovering/Resolving]
  - Disorientation [Recovering/Resolving]
  - Aphasia [Recovering/Resolving]
  - Glomerular filtration rate decreased [Unknown]
  - Apraxia [Recovering/Resolving]
  - Delirium [Recovering/Resolving]
  - Tremor [Recovering/Resolving]
